FAERS Safety Report 8746387 (Version 2)
Quarter: 2013Q4

REPORT INFORMATION
  Report Type: Spontaneous
  Country: US (occurrence: US)
  Receive Date: 20120827
  Receipt Date: 20131101
  Transmission Date: 20140711
  Serious: No
  Sender: FDA-Public Use
  Company Number: US-009507513-1208USA003648

PATIENT
  Age: 64 Year
  Sex: Female
  Weight: 47.17 kg

DRUGS (4)
  1. PEG-INTRON [Suspect]
     Dosage: 80 MICROGRAM, QW
     Route: 058
  2. VICTRELIS [Suspect]
     Dosage: UNK
     Route: 048
  3. REBETOL [Suspect]
     Dosage: UNK
     Route: 048
  4. PROTONIX [Concomitant]

REACTIONS (5)
  - Dysgeusia [Unknown]
  - Haemoglobin decreased [Unknown]
  - Nausea [Unknown]
  - Asthenia [Unknown]
  - Chills [Unknown]
